FAERS Safety Report 13716908 (Version 1)
Quarter: 2017Q3

REPORT INFORMATION
  Report Type: Spontaneous
  Country: US (occurrence: US)
  Receive Date: 20170703
  Receipt Date: 20170703
  Transmission Date: 20171127
  Serious: Yes (Life-Threatening, Hospitalization)
  Sender: FDA-Public Use
  Company Number: None

PATIENT
  Age: 72 Year
  Sex: Male
  Weight: 65.25 kg

DRUGS (4)
  1. BENZTROPINE MESYLATE. [Suspect]
     Active Substance: BENZTROPINE MESYLATE
  2. ATORVASTATIN CALCIUM. [Concomitant]
     Active Substance: ATORVASTATIN CALCIUM
  3. OLANZAPINE. [Suspect]
     Active Substance: OLANZAPINE
     Indication: HYPERTENSION
     Dosage: ?          QUANTITY:1 TABLET(S);?
     Route: 048
  4. TOPIRAMATE. [Suspect]
     Active Substance: TOPIRAMATE

REACTIONS (5)
  - Amnesia [None]
  - Blood creatinine abnormal [None]
  - Aggression [None]
  - Confusional state [None]
  - Blood urea abnormal [None]

NARRATIVE: CASE EVENT DATE: 20170627
